FAERS Safety Report 16892658 (Version 1)
Quarter: 2019Q4

REPORT INFORMATION
  Report Type: Spontaneous
  Country: GB (occurrence: GB)
  Receive Date: 20191007
  Receipt Date: 20191007
  Transmission Date: 20200122
  Serious: Yes (Hospitalization)
  Sender: FDA-Public Use
  Company Number: GB-MYLANLABS-2019M1092364

PATIENT
  Age: 52 Year
  Sex: Male

DRUGS (5)
  1. SERTRALINE [Suspect]
     Active Substance: SERTRALINE HYDROCHLORIDE
     Indication: ANXIETY
     Dosage: 200 MILLIGRAM
     Route: 048
     Dates: end: 20190510
  2. DIAZEPAM. [Concomitant]
     Active Substance: DIAZEPAM
     Dosage: 4 MILLIGRAM, QD
  3. THIAMINE. [Concomitant]
     Active Substance: THIAMINE
     Dosage: 200 MILLIGRAM, QD
  4. VITAMIN B COMPOUND                 /00171501/ [Concomitant]
     Dosage: UNK
  5. SALBUTAMOL [Concomitant]
     Active Substance: ALBUTEROL
     Dosage: 800 MILLIGRAM, QD

REACTIONS (2)
  - Cerebral haemorrhage [Recovering/Resolving]
  - Hemiplegia [Recovering/Resolving]

NARRATIVE: CASE EVENT DATE: 20190403
